FAERS Safety Report 6263573-2 (Version None)
Quarter: 2009Q3

REPORT INFORMATION
  Report Type: 
  Country: None (occurrence: None)
  Receive Date: 20090710
  Receipt Date: 20090601
  Transmission Date: 20100115
  Serious: No
  Sender: FDA-Public Use
  Company Number: A0782578A

PATIENT
  Age: 61 Year
  Sex: Female

DRUGS (5)
  1. TYKERB [Suspect]
     Indication: BREAST CANCER
     Dosage: 5TAB PER DAY
     Route: 048
     Dates: start: 20090428
  2. KEPPRA [Concomitant]
  3. LIPITOR [Concomitant]
  4. BENADRYL [Concomitant]
  5. PRILOSEC [Concomitant]

REACTIONS (4)
  - ASTHENIA [None]
  - DIARRHOEA [None]
  - FATIGUE [None]
  - NAUSEA [None]
